FAERS Safety Report 9540996 (Version 2)
Quarter: 2013Q3

REPORT INFORMATION
  Report Type: Spontaneous
  Country: None (occurrence: US)
  Receive Date: 20130922
  Receipt Date: 20130922
  Transmission Date: 20140515
  Serious: No
  Sender: FDA-Public Use
  Company Number: US-ALLERGAN-1214738US

PATIENT
  Age: 79 Year
  Sex: Male
  Weight: 99.77 kg

DRUGS (4)
  1. SANCTURA XR [Suspect]
     Indication: POLLAKIURIA
     Dosage: 60 MG, QD
     Route: 048
     Dates: start: 20121018, end: 20121021
  2. LIPITOR [Concomitant]
     Indication: BLOOD CHOLESTEROL INCREASED
     Dosage: 5 MG, UNK
     Route: 048
  3. LISINOPRIL [Concomitant]
     Indication: HYPERTENSION
     Dosage: 5 MG, UNK
     Route: 048
  4. AVODART [Concomitant]
     Indication: URINARY TRACT DISORDER
     Dosage: 0.5 MG, UNK
     Route: 048

REACTIONS (2)
  - Dysuria [Recovered/Resolved]
  - Dry mouth [Recovered/Resolved]
